FAERS Safety Report 7649625-0 (Version None)
Quarter: 2011Q3

REPORT INFORMATION
  Report Type: 
  Country: None (occurrence: None)
  Receive Date: 20110802
  Receipt Date: 20110731
  Transmission Date: 20111222
  Serious: No
  Sender: FDA-Public Use
  Company Number: US-PFIZER INC-2011174032

PATIENT
  Sex: Male
  Weight: 104 kg

DRUGS (5)
  1. RASAGILINE [Concomitant]
     Dosage: 1 MG, 1X/DAY
  2. NEURONTIN [Suspect]
     Indication: PAIN IN EXTREMITY
     Dosage: 300 MG, 3X/DAY
     Route: 048
     Dates: start: 20110730
  3. NEURONTIN [Suspect]
     Indication: HYPOAESTHESIA
  4. DYAZIDE [Concomitant]
     Indication: BLOOD PRESSURE ABNORMAL
     Dosage: UNK
  5. NEURONTIN [Suspect]
     Indication: PARAESTHESIA

REACTIONS (2)
  - FEELING DRUNK [None]
  - TREMOR [None]
